FAERS Safety Report 8479105-4 (Version None)
Quarter: 2012Q2

REPORT INFORMATION
  Report Type: 
  Country: None (occurrence: None)
  Receive Date: 20120629
  Receipt Date: 20120618
  Transmission Date: 20120825
  Serious: Yes (Hospitalization, Other)
  Sender: FDA-Public Use
  Company Number: US-BRISTOL-MYERS SQUIBB COMPANY-16695462

PATIENT
  Age: 48 Year
  Sex: Male

DRUGS (5)
  1. CYCLOPHOSPHAMIDE [Suspect]
     Indication: PRIMARY EFFUSION LYMPHOMA
  2. PREDNISONE TAB [Suspect]
     Indication: PRIMARY EFFUSION LYMPHOMA
  3. DOXORUBICIN HCL [Suspect]
     Indication: PRIMARY EFFUSION LYMPHOMA
  4. VINCRISTINE [Suspect]
     Indication: PRIMARY EFFUSION LYMPHOMA
  5. ETOPOSIDE [Suspect]
     Indication: PRIMARY EFFUSION LYMPHOMA

REACTIONS (3)
  - GASTROINTESTINAL NECROSIS [None]
  - LARGE INTESTINE PERFORATION [None]
  - SMALL INTESTINAL OBSTRUCTION [None]
